FAERS Safety Report 6197250-3 (Version None)
Quarter: 2009Q2

REPORT INFORMATION
  Report Type: 
  Country: None (occurrence: None)
  Receive Date: 20090521
  Receipt Date: 20070529
  Transmission Date: 20091009
  Serious: Yes (Other)
  Sender: FDA-Public Use
  Company Number: US-ASTRAZENECA-2006UW24748

PATIENT
  Age: 19027 Day
  Sex: Female
  Weight: 86.2 kg

DRUGS (40)
  1. SEROQUEL [Suspect]
     Indication: SLEEP DISORDER
     Route: 048
     Dates: start: 20000101
  2. SEROQUEL [Suspect]
     Indication: BIPOLAR DISORDER
     Route: 048
     Dates: start: 20000101
  3. SEROQUEL [Suspect]
     Indication: DEPRESSION
     Route: 048
     Dates: start: 20000101
  4. SEROQUEL [Suspect]
     Indication: ANXIETY
     Route: 048
     Dates: start: 20000101
  5. SEROQUEL [Suspect]
     Dosage: 80 TO 800 MG
     Route: 048
     Dates: start: 20030912
  6. SEROQUEL [Suspect]
     Dosage: 80 TO 800 MG
     Route: 048
     Dates: start: 20030912
  7. SEROQUEL [Suspect]
     Dosage: 80 TO 800 MG
     Route: 048
     Dates: start: 20030912
  8. SEROQUEL [Suspect]
     Dosage: 80 TO 800 MG
     Route: 048
     Dates: start: 20030912
  9. PAXIL CR [Concomitant]
     Indication: ANXIETY
     Route: 048
  10. PAXIL CR [Concomitant]
     Indication: DEPRESSION
     Route: 048
  11. DEMEROL [Concomitant]
     Indication: PAIN
     Route: 048
  12. ELAVIL [Concomitant]
     Route: 065
  13. NEURONTIN [Concomitant]
     Route: 048
  14. NEURONTIN [Concomitant]
     Route: 065
  15. VIOXX [Concomitant]
     Route: 065
  16. VICODIN [Concomitant]
     Indication: PAIN
     Route: 065
  17. EFFEXOR XR [Concomitant]
     Route: 065
  18. ZANAFLEX [Concomitant]
     Route: 065
  19. VISTARIL [Concomitant]
     Indication: INSOMNIA
     Dosage: 25, 50 MG
     Route: 048
     Dates: end: 20040514
  20. ZYPREXA [Concomitant]
     Route: 065
     Dates: start: 20030926
  21. METOPROLOL [Concomitant]
     Route: 065
  22. LAMICTAL [Concomitant]
     Indication: IRRITABILITY
     Route: 048
  23. LAMICTAL [Concomitant]
     Indication: MOOD SWINGS
     Route: 048
  24. LAMICTAL [Concomitant]
     Indication: DEPRESSION
     Route: 048
  25. PHENERGAN [Concomitant]
     Dosage: 25 TO 50 MG
     Route: 065
  26. TRILEPTAL [Concomitant]
     Route: 065
  27. LEXAPRO [Concomitant]
     Route: 065
  28. TEMAZEPAM [Concomitant]
     Dosage: 15 TO 30 MG
     Route: 065
  29. ANTIVERT [Concomitant]
     Indication: VERTIGO
     Route: 065
  30. RELPAX [Concomitant]
     Route: 065
  31. AVANDAMET [Concomitant]
     Route: 065
  32. GEODON [Concomitant]
     Indication: AGITATION
     Dosage: 40 TO 80 MG
     Route: 065
  33. ATIVAN [Concomitant]
     Route: 065
  34. GLUCOPHAGE [Concomitant]
     Dosage: 500 TO 1000 MG
     Route: 065
  35. ZOCOR [Concomitant]
     Dosage: 20 MG, 40 MG
     Route: 048
  36. ACTOS [Concomitant]
     Route: 065
  37. AMARYL [Concomitant]
     Route: 065
  38. VYTORIN [Concomitant]
     Route: 065
  39. GLUCOTROL [Concomitant]
     Route: 065
  40. SONATA [Concomitant]
     Indication: INSOMNIA
     Route: 065
     Dates: end: 20070402

REACTIONS (44)
  - ABDOMINAL PAIN LOWER [None]
  - ABSCESS DRAINAGE [None]
  - ACUTE PSYCHOSIS [None]
  - ANGINA PECTORIS [None]
  - ASTHMA [None]
  - BACK PAIN [None]
  - BORDERLINE PERSONALITY DISORDER [None]
  - BREAST MASS [None]
  - CEREBROVASCULAR ACCIDENT [None]
  - CHRONIC OBSTRUCTIVE PULMONARY DISEASE [None]
  - CONVULSION [None]
  - DIABETES MELLITUS [None]
  - DIABETES MELLITUS INADEQUATE CONTROL [None]
  - DIZZINESS [None]
  - DYSPHAGIA [None]
  - ESSENTIAL TREMOR [None]
  - GASTROENTERITIS [None]
  - GASTROOESOPHAGEAL REFLUX DISEASE [None]
  - HYPERLIPIDAEMIA [None]
  - INSOMNIA [None]
  - INSULIN-REQUIRING TYPE 2 DIABETES MELLITUS [None]
  - INTERMITTENT CLAUDICATION [None]
  - INTERVERTEBRAL DISC DISPLACEMENT [None]
  - INTERVERTEBRAL DISC PROTRUSION [None]
  - IRRITABLE BOWEL SYNDROME [None]
  - ISCHAEMIC NEUROPATHY [None]
  - KNEE DEFORMITY [None]
  - MAJOR DEPRESSION [None]
  - MEMORY IMPAIRMENT [None]
  - MIGRAINE [None]
  - MUSCLE STRAIN [None]
  - MUSCULOSKELETAL PAIN [None]
  - NECK PAIN [None]
  - OEDEMA PERIPHERAL [None]
  - PAIN [None]
  - POST-TRAUMATIC STRESS DISORDER [None]
  - SKIN LESION [None]
  - SPINAL OSTEOARTHRITIS [None]
  - UPPER RESPIRATORY TRACT INFECTION [None]
  - URINARY INCONTINENCE [None]
  - URINARY TRACT INFECTION [None]
  - URTICARIA [None]
  - VERTIGO [None]
  - VISION BLURRED [None]
